FAERS Safety Report 9223098 (Version 1)
Quarter: 2013Q1

REPORT INFORMATION
  Report Type: Spontaneous
  Country: US (occurrence: None)
  Receive Date: 20120914
  Receipt Date: 20120914
  Transmission Date: 20140127
  Serious: Yes (Other)
  Sender: FDA-Public Use
  Company Number: JPI-P-017583

PATIENT
  Age: 51 Year
  Sex: Female
  Weight: 54.89 kg

DRUGS (8)
  1. XYREM [Suspect]
     Indication: NARCOLEPSY
     Dosage: 4.5 GM (2.25 GM, 2 IN 1 D), ORAL?
     Route: 048
     Dates: start: 20111007, end: 20111113
  2. CLONAZEPAM [Suspect]
     Indication: ANXIETY
  3. CLONAZEPAM [Suspect]
     Indication: DEPRESSION
  4. LEVOTHYROXINE [Concomitant]
  5. PROGESTERONE [Concomitant]
  6. SIMVASTATIN [Concomitant]
  7. CITALOPRAM HYDROBROMIDE [Concomitant]
  8. IRON [Concomitant]

REACTIONS (8)
  - Self-injurious ideation [None]
  - Depression [None]
  - Anxiety [None]
  - Palpitations [None]
  - Menstruation delayed [None]
  - Restlessness [None]
  - Feeling abnormal [None]
  - Chest pain [None]
